FAERS Safety Report 10452372 (Version 1)
Quarter: 2014Q3

REPORT INFORMATION
  Report Type: Other
  Country: BR (occurrence: BR)
  Receive Date: 20140915
  Receipt Date: 20140915
  Transmission Date: 20150326
  Serious: Yes (Other)
  Sender: FDA-Public Use
  Company Number: BR-BRISTOL-MYERS SQUIBB COMPANY-21374558

PATIENT
  Age: 60 Year
  Sex: Female

DRUGS (1)
  1. TRIAMCINOLONE ACE INJ [Suspect]
     Active Substance: TRIAMCINOLONE ACETONIDE
     Indication: TENDON DISORDER
     Dosage: 1DF: 20 MG/ML, 3 ML?INJECTION

REACTIONS (2)
  - Foot fracture [Recovering/Resolving]
  - Lipoatrophy [Recovering/Resolving]
